FAERS Safety Report 5992280-6 (Version None)
Quarter: 2008Q4

REPORT INFORMATION
  Report Type: 
  Country: None (occurrence: None)
  Receive Date: 20081211
  Receipt Date: 20080514
  Transmission Date: 20090506
  Serious: No
  Sender: FDA-Public Use
  Company Number: US-AMGEN-KDL277689

PATIENT
  Sex: Female
  Weight: 122.1 kg

DRUGS (11)
  1. ENBREL [Suspect]
     Indication: RHEUMATOID ARTHRITIS
     Route: 058
     Dates: start: 20071128
  2. PHENERGAN HCL [Concomitant]
     Dates: start: 20080215
  3. PREVACID [Concomitant]
  4. MIACALCIN [Concomitant]
     Dates: start: 20070601
  5. DARVOCET-N 100 [Concomitant]
     Dates: start: 20060201
  6. ERYTHROMYCIN ETHYLSUCCINATE [Concomitant]
     Dates: start: 20080201
  7. ASPIRIN [Concomitant]
     Dates: start: 20080201
  8. HYZAAR [Concomitant]
  9. POTASSIUM CHLORIDE [Concomitant]
  10. SYNTHROID [Concomitant]
  11. ZANAFLEX [Concomitant]
     Dates: start: 20071128

REACTIONS (3)
  - ALOPECIA [None]
  - DRUG INEFFECTIVE [None]
  - INJECTION SITE PAIN [None]
